FAERS Safety Report 10132164 (Version 1)
Quarter: 2014Q2

REPORT INFORMATION
  Report Type: Spontaneous
  Country: TW (occurrence: TW)
  Receive Date: 20140428
  Receipt Date: 20140428
  Transmission Date: 20141212
  Serious: Yes (Hospitalization)
  Sender: FDA-Public Use
  Company Number: TW-SA-2014SA049143

PATIENT
  Age: 73 Year
  Sex: Male

DRUGS (3)
  1. PLAVIX [Suspect]
     Indication: PRODUCT USED FOR UNKNOWN INDICATION
     Route: 048
     Dates: start: 20130514
  2. BOKEY [Concomitant]
     Route: 048
  3. EXFORGE [Concomitant]
     Dosage: DOSE: 5/80 MG
     Route: 048

REACTIONS (2)
  - Carotid artery occlusion [Recovered/Resolved]
  - Dizziness [Recovered/Resolved]
